FAERS Safety Report 15366569 (Version 1)
Quarter: 2018Q3

REPORT INFORMATION
  Report Type: Spontaneous
  Country: US (occurrence: US)
  Receive Date: 20180901
  Receipt Date: 20180901
  Transmission Date: 20181010
  Serious: Yes (Life-Threatening, Other)
  Sender: FDA-Public Use
  Company Number: None

PATIENT
  Age: 69 Year
  Sex: Male
  Weight: 71.1 kg

DRUGS (12)
  1. SIMVASTATIN. [Concomitant]
     Active Substance: SIMVASTATIN
  2. LOSARTAN. [Concomitant]
     Active Substance: LOSARTAN
  3. FLUTICASONE PROPIONATE. [Concomitant]
     Active Substance: FLUTICASONE PROPIONATE
  4. VITAMIN C [Concomitant]
     Active Substance: ASCORBIC ACID
  5. IPRATROIUM?ALBUTEROL [Concomitant]
  6. ASPIRIN (COATED LOW DOSE) [Concomitant]
  7. VITAMIN D3 [Concomitant]
     Active Substance: CHOLECALCIFEROL
  8. PULMICORT TURBUHALER [Concomitant]
     Active Substance: BUDESONIDE
  9. DESLORATADINE. [Concomitant]
     Active Substance: DESLORATADINE
  10. TRELEGY ELLIPTA [Suspect]
     Active Substance: FLUTICASONE FUROATE\UMECLIDINIUM BROMIDE\VILANTEROL TRIFENATATE
     Indication: ASTHMA
     Dosage: ?          QUANTITY:1 INHALATION(S);?
     Route: 055
     Dates: start: 20180711, end: 20180714
  11. AMLODIPINE [Concomitant]
     Active Substance: AMLODIPINE BESYLATE
  12. MULTIVITAMIN [Concomitant]
     Active Substance: VITAMINS

REACTIONS (9)
  - Productive cough [None]
  - Cough [None]
  - Dyspnoea [None]
  - Product use in unapproved indication [None]
  - Chills [None]
  - Pyrexia [None]
  - Ageusia [None]
  - Decreased appetite [None]
  - Asthma [None]

NARRATIVE: CASE EVENT DATE: 20180714
